FAERS Safety Report 15886175 (Version 1)
Quarter: 2019Q1

REPORT INFORMATION
  Report Type: Spontaneous
  Country: FR (occurrence: FR)
  Receive Date: 20190129
  Receipt Date: 20190129
  Transmission Date: 20190417
  Serious: Yes (Life-Threatening, Hospitalization)
  Sender: FDA-Public Use
  Company Number: FR-PFIZER INC-2019034923

PATIENT
  Age: 43 Year
  Sex: Male
  Weight: 73.3 kg

DRUGS (7)
  1. ONCASPAR [Suspect]
     Active Substance: PEGASPARGASE
     Indication: T-CELL TYPE ACUTE LEUKAEMIA
     Dosage: 3750 IU, UNK
     Route: 042
     Dates: start: 201808
  2. NOXAFIL [Concomitant]
     Active Substance: POSACONAZOLE
  3. VINCRISTINE SULFATE. [Suspect]
     Active Substance: VINCRISTINE SULFATE
     Indication: T-CELL TYPE ACUTE LEUKAEMIA
     Dosage: 2 MG, UNK
     Route: 042
     Dates: start: 20180814
  4. CYTARABINE EBEWE [Suspect]
     Active Substance: CYTARABINE
     Indication: T-CELL TYPE ACUTE LEUKAEMIA
     Dosage: 10000 MG, 1X/DAY
     Route: 042
     Dates: start: 20180814, end: 20180815
  5. CHOLURSO [Concomitant]
     Active Substance: URSODIOL
  6. ZARZIO [Concomitant]
     Active Substance: FILGRASTIM
  7. ELUDRIL [CHLORHEXIDINE GLUCONATE] [Concomitant]

REACTIONS (3)
  - Septic shock [Recovered/Resolved]
  - Bone marrow failure [Recovered/Resolved]
  - Disseminated intravascular coagulation [Recovered/Resolved]

NARRATIVE: CASE EVENT DATE: 20180817
